FAERS Safety Report 5141262-5 (Version None)
Quarter: 2006Q4

REPORT INFORMATION
  Report Type: 
  Country: None (occurrence: None)
  Receive Date: 20061101
  Receipt Date: 20061019
  Transmission Date: 20070319
  Serious: Yes (Hospitalization)
  Sender: FDA-Public Use
  Company Number: PHRM2006FR02886

PATIENT
  Age: 71 Year
  Sex: Male

DRUGS (8)
  1. ZOMETA [Suspect]
     Indication: METASTASES TO BONE
     Dosage: 4 MG, ONCE/SINGLE
     Route: 042
     Dates: start: 20060916, end: 20060916
  2. LASIX [Suspect]
     Dosage: 60 DF DAILY
     Route: 048
     Dates: end: 20060918
  3. HYPERIUM [Suspect]
     Dosage: 100 DF DAILY
     Route: 048
     Dates: end: 20060918
  4. TAREG [Suspect]
     Indication: HYPERTENSION
     Dosage: 160 MG DAILY
     Route: 048
     Dates: end: 20060918
  5. STAGID [Suspect]
     Dosage: 3 DF DAILY
     Route: 048
     Dates: end: 20060918
  6. SKENAN [Suspect]
     Route: 048
     Dates: start: 20060915, end: 20060918
  7. MONO-TILDIEM [Concomitant]
  8. ZOLPIDEM TARTRATE [Concomitant]

REACTIONS (9)
  - BLOOD CREATININE INCREASED [None]
  - BLOOD UREA INCREASED [None]
  - CONDITION AGGRAVATED [None]
  - DIALYSIS [None]
  - GENERAL PHYSICAL HEALTH DETERIORATION [None]
  - MUSCULOSKELETAL PAIN [None]
  - PROSTATE CANCER [None]
  - PYREXIA [None]
  - RENAL FAILURE ACUTE [None]
